FAERS Safety Report 6676695-9 (Version None)
Quarter: 2010Q2

REPORT INFORMATION
  Report Type: 
  Country: None (occurrence: None)
  Receive Date: 20100412
  Receipt Date: 20100401
  Transmission Date: 20101027
  Serious: Yes (Other)
  Sender: FDA-Public Use
  Company Number: CA-JNJFOC-20100401110

PATIENT
  Sex: Female
  Weight: 107 kg

DRUGS (5)
  1. REMICADE [Suspect]
     Indication: RHEUMATOID ARTHRITIS
     Route: 042
  2. REMICADE [Suspect]
     Route: 042
  3. ATASOL [Concomitant]
     Indication: PREMEDICATION
  4. SOLU-CORTEF [Concomitant]
     Indication: PREMEDICATION
  5. BENADRYL [Concomitant]
     Indication: PREMEDICATION

REACTIONS (4)
  - BLOOD PRESSURE INCREASED [None]
  - HOT FLUSH [None]
  - INFUSION RELATED REACTION [None]
  - ROAD TRAFFIC ACCIDENT [None]
